FAERS Safety Report 9450581 (Version 3)
Quarter: 2013Q3

REPORT INFORMATION
  Report Type: Spontaneous
  Country: JP (occurrence: JP)
  Receive Date: 20130809
  Receipt Date: 20130903
  Transmission Date: 20140515
  Serious: Yes (Hospitalization)
  Sender: FDA-Public Use
  Company Number: JP-GLAXOSMITHKLINE-B0912894A

PATIENT
  Sex: Male

DRUGS (2)
  1. REQUIP [Suspect]
     Indication: PARKINSON^S DISEASE
     Dosage: 2MG THREE TIMES PER DAY
     Route: 048
     Dates: start: 201307, end: 2013
  2. LEVODOPA [Concomitant]
     Route: 065

REACTIONS (8)
  - Delirium [Recovering/Resolving]
  - Suicide attempt [Recovering/Resolving]
  - Restlessness [Unknown]
  - Poriomania [Unknown]
  - Fall [Unknown]
  - Injury [Unknown]
  - Treatment noncompliance [Unknown]
  - Drug withdrawal syndrome [Recovered/Resolved]
